FAERS Safety Report 15397809 (Version 3)
Quarter: 2019Q3

REPORT INFORMATION
  Report Type: Spontaneous
  Country: US (occurrence: US)
  Receive Date: 20180918
  Receipt Date: 20190715
  Transmission Date: 20191004
  Serious: No
  Sender: FDA-Public Use
  Company Number: US-PFIZER INC-2018375046

PATIENT
  Age: 63 Year
  Sex: Male

DRUGS (1)
  1. LYRICA [Suspect]
     Active Substance: PREGABALIN
     Indication: DIABETIC NEUROPATHY
     Dosage: 150 MG, 3X/DAY
     Route: 048

REACTIONS (7)
  - Gait disturbance [Unknown]
  - Anxiety [Unknown]
  - Dyspnoea [Unknown]
  - Withdrawal syndrome [Unknown]
  - Pain in extremity [Unknown]
  - Emotional disorder [Unknown]
  - Chest discomfort [Unknown]
